FAERS Safety Report 5300387-1 (Version None)
Quarter: 2007Q2

REPORT INFORMATION
  Report Type: 
  Country: None (occurrence: None)
  Receive Date: 20070413
  Receipt Date: 20070413
  Transmission Date: 20071010
  Serious: Yes (Other)
  Sender: FDA-Public Use
  Company Number: None

PATIENT
  Age: 41 Year
  Sex: Male
  Weight: 86.637 kg

DRUGS (1)
  1. ENTECAVIR    1.0 MG    BRISTOL-MYERS SQUIBB [Suspect]
     Indication: HEPATITIS B
     Dosage: 1.0 MG DAILY PO
     Route: 048
     Dates: start: 20060524, end: 20070412

REACTIONS (2)
  - BLOOD HIV RNA DECREASED [None]
  - VIRAL MUTATION IDENTIFIED [None]
